FAERS Safety Report 18307139 (Version 3)
Quarter: 2020Q4

REPORT INFORMATION
  Report Type: Report from Study
  Country: US (occurrence: US)
  Receive Date: 20200924
  Receipt Date: 20201018
  Transmission Date: 20210113
  Serious: No
  Sender: FDA-Public Use
  Company Number: US-ADVANZ PHARMA-202009008715

PATIENT

DRUGS (2)
  1. HUMIRA [Suspect]
     Active Substance: ADALIMUMAB
     Indication: RHEUMATOID ARTHRITIS
     Dosage: 40 MG, 1 IN 14 D (40 MG/ 0.4ML)
     Route: 058
     Dates: start: 20200630
  2. HYDROXYCHLOROQUINE [Suspect]
     Active Substance: HYDROXYCHLOROQUINE
     Indication: PRODUCT USED FOR UNKNOWN INDICATION
     Dosage: UNK
     Route: 065

REACTIONS (10)
  - Back pain [Unknown]
  - Hot flush [Unknown]
  - Rash macular [Unknown]
  - Conjunctival discolouration [Recovered/Resolved]
  - Migraine [Unknown]
  - Night sweats [Recovered/Resolved]
  - Photosensitivity reaction [Unknown]
  - Pain [Recovered/Resolved]
  - Discomfort [Recovered/Resolved]
  - Fatigue [Recovered/Resolved]

NARRATIVE: CASE EVENT DATE: 2020
